FAERS Safety Report 6234285-6 (Version None)
Quarter: 2009Q2

REPORT INFORMATION
  Report Type: 
  Country: None (occurrence: None)
  Receive Date: 20090618
  Receipt Date: 20090615
  Transmission Date: 20091009
  Serious: Yes (Death)
  Sender: FDA-Public Use
  Company Number: FR-ASTRAZENECA-2009CG01243

PATIENT
  Age: 0 Day
  Sex: Female

DRUGS (25)
  1. NEXIUM [Suspect]
     Route: 064
     Dates: start: 20080613, end: 20080821
  2. NEXIUM [Suspect]
     Route: 064
     Dates: start: 20080822, end: 20081217
  3. IMUREL [Suspect]
     Route: 064
     Dates: start: 20080613, end: 20080821
  4. IMUREL [Suspect]
     Route: 064
     Dates: start: 20080822, end: 20080905
  5. IMUREL [Suspect]
     Route: 064
     Dates: start: 20080906, end: 20080916
  6. NEORAL [Suspect]
     Route: 064
     Dates: end: 20081021
  7. NEORAL [Suspect]
     Route: 064
     Dates: start: 20081022, end: 20081105
  8. NEORAL [Suspect]
     Route: 064
     Dates: start: 20081105, end: 20081217
  9. RENAGEL [Suspect]
     Route: 064
     Dates: start: 20080828, end: 20081215
  10. KAYEXALATE [Suspect]
     Route: 064
     Dates: start: 20080613, end: 20080804
  11. KAYEXALATE [Suspect]
     Route: 064
     Dates: start: 20080805, end: 20081115
  12. MUCOMYST [Suspect]
     Route: 064
     Dates: start: 20081107, end: 20081110
  13. PIVALONE [Suspect]
     Route: 064
     Dates: start: 20081031, end: 20081107
  14. RHINOFLUIMUCIL [Suspect]
     Route: 064
     Dates: start: 20081107, end: 20081110
  15. ATARAX [Suspect]
     Route: 064
     Dates: start: 20080818, end: 20081217
  16. ORELOX [Suspect]
     Route: 064
     Dates: start: 20081107, end: 20081117
  17. ANTIBIOTREX [Suspect]
     Route: 064
     Dates: start: 20080829, end: 20080916
  18. RUBOZINC [Suspect]
     Route: 064
     Dates: start: 20080829, end: 20080916
  19. AMLODIPINE [Suspect]
     Route: 064
     Dates: start: 20080620, end: 20080916
  20. AMLODIPINE [Suspect]
     Route: 064
     Dates: start: 20080917, end: 20081215
  21. LASIX [Suspect]
     Route: 064
     Dates: start: 20080613, end: 20081215
  22. SPECIAFOLDINE [Suspect]
     Route: 064
     Dates: start: 20081008, end: 20081217
  23. UN-ALFA [Suspect]
     Route: 064
     Dates: start: 20080704, end: 20081017
  24. ARANESP [Concomitant]
     Route: 064
  25. VENOFER [Concomitant]
     Route: 064

REACTIONS (1)
  - INTRA-UTERINE DEATH [None]
